FAERS Safety Report 5817964-1 (Version None)
Quarter: 2008Q3

REPORT INFORMATION
  Report Type: 
  Country: None (occurrence: None)
  Receive Date: 20080722
  Receipt Date: 20080717
  Transmission Date: 20090109
  Serious: Yes (Death)
  Sender: FDA-Public Use
  Company Number: TH-BOEHRINGER INGELHEIM GMBH, GERMANY-2008-DE-04165GD

PATIENT

DRUGS (3)
  1. NEVIRAPINE [Suspect]
     Indication: HIV INFECTION
  2. RIFAMPIN [Suspect]
     Indication: TUBERCULOSIS
  3. ANTI-HIV DRUGS [Suspect]
     Indication: HIV INFECTION

REACTIONS (1)
  - DEATH [None]
